FAERS Safety Report 25654440 (Version 2)
Quarter: 2025Q3

REPORT INFORMATION
  Report Type: Spontaneous
  Country: JP (occurrence: JP)
  Receive Date: 20250807
  Receipt Date: 20250916
  Transmission Date: 20251021
  Serious: Yes (Hospitalization)
  Sender: GUERBET
  Company Number: JP-GUERBETG_JAPAN-JP-20250130

PATIENT
  Age: 67 Year
  Sex: Male

DRUGS (1)
  1. LIPIODOL [Suspect]
     Active Substance: ETHIODIZED OIL
     Indication: Lymphangiogram
     Dosage: DOSAGE: 2 AMPOULES?ROUTE OF ADMINISTRATION: FROM THE INGUINAL LYMPH NODES
     Route: 027
     Dates: start: 20250707, end: 20250707

REACTIONS (2)
  - Embolism arterial [Recovering/Resolving]
  - Cerebral infarction [Recovering/Resolving]

NARRATIVE: CASE EVENT DATE: 20250707
